FAERS Safety Report 9680371 (Version 3)
Quarter: 2013Q4

REPORT INFORMATION
  Report Type: Report from Study
  Country: PL (occurrence: PL)
  Receive Date: 20131111
  Receipt Date: 20131210
  Transmission Date: 20140711
  Serious: Yes (Other)
  Sender: FDA-Public Use
  Company Number: PL-ROCHE-1298534

PATIENT
  Age: 54 Year
  Sex: Female

DRUGS (7)
  1. FLUDARABINE [Suspect]
     Indication: MANTLE CELL LYMPHOMA
     Route: 065
     Dates: start: 200912, end: 201003
  2. CYCLOPHOSPHAMIDE [Concomitant]
     Indication: MANTLE CELL LYMPHOMA
     Dosage: SIX CYCLES IN USUAL DOSES AT 21-DAY INTERVALS.
     Route: 065
     Dates: start: 200802, end: 201003
  3. CYCLOPHOSPHAMIDE [Concomitant]
     Route: 065
     Dates: start: 200802
  4. DOXORUBICIN [Concomitant]
     Dosage: SIX CYCLES IN USUAL DOSES AT 21-DAY INTERVALS.
     Route: 065
     Dates: start: 200802
  5. VINCRISTINE [Concomitant]
     Dosage: SIX CYCLES IN USUAL DOSES AT 21-DAY INTERVALS.
     Route: 065
     Dates: start: 200802
  6. PREDNISONE [Concomitant]
     Dosage: SIX CYCLES IN USUAL DOSES AT 21-DAY INTERVALS.
     Route: 065
     Dates: start: 200802
  7. MABTHERA [Suspect]
     Indication: MANTLE CELL LYMPHOMA
     Route: 065
     Dates: start: 200802, end: 201003

REACTIONS (5)
  - Neoplasm of orbit [Unknown]
  - Lymphadenopathy [Unknown]
  - Thrombocytopenia [Unknown]
  - Herpes zoster [Unknown]
  - Erythema [Unknown]
